FAERS Safety Report 12439627 (Version 1)
Quarter: 2016Q2

REPORT INFORMATION
  Report Type: Report from Study
  Country: US (occurrence: US)
  Receive Date: 20160606
  Receipt Date: 20160606
  Transmission Date: 20160815
  Serious: No
  Sender: FDA-Public Use
  Company Number: US-MDT-ADR-2016-01010

PATIENT
  Age: 40 Year
  Sex: Female

DRUGS (4)
  1. MORPHINE [Suspect]
     Active Substance: MORPHINE
     Dosage: 15.385 MG/DAY
     Route: 037
  2. HYDROCODONE [Suspect]
     Active Substance: HYDROCODONE
     Route: 065
     Dates: start: 20151007
  3. BACLOFEN. [Suspect]
     Active Substance: BACLOFEN
     Route: 065
     Dates: start: 20151007
  4. COMPOUNDED BACLOFEN [Suspect]
     Active Substance: BACLOFEN
     Dosage: 581.2  MCG/DAY
     Route: 037

REACTIONS (4)
  - Muscle spasms [Recovered/Resolved]
  - Headache [Recovered/Resolved]
  - Nausea [Recovered/Resolved]
  - Back pain [Recovered/Resolved]

NARRATIVE: CASE EVENT DATE: 20151007
